FAERS Safety Report 6415633-0 (Version None)
Quarter: 2009Q4

REPORT INFORMATION
  Report Type: 
  Country: None (occurrence: None)
  Receive Date: 20091027
  Receipt Date: 20091014
  Transmission Date: 20100525
  Serious: Yes (Other)
  Sender: FDA-Public Use
  Company Number: US-ROCHE-662860

PATIENT
  Sex: Female
  Weight: 74.3 kg

DRUGS (10)
  1. TOCILIZUMAB [Suspect]
     Indication: RHEUMATOID ARTHRITIS
     Dosage: LAST DOSE PRIOR TO SAE: 30 JUL 2009; FORM: AS PER PROTOCOL
     Route: 042
     Dates: end: 20091006
  2. TOCILIZUMAB [Suspect]
     Route: 042
  3. METHOTREXATE [Suspect]
     Indication: RHEUMATOID ARTHRITIS
     Route: 065
     Dates: start: 19990101, end: 20090819
  4. DARVOCET-N 100 [Concomitant]
     Dosage: DRUG: DARVOCET-N 100; FREQUENCY: PRN
     Dates: start: 19990101
  5. FOLIC ACID [Concomitant]
     Dates: start: 19990101
  6. FLECAINIDE ACETATE [Concomitant]
     Dates: start: 20080306
  7. TUMS [Concomitant]
     Dosage: FREQUENCY: PRN
     Dates: start: 20081025, end: 20090915
  8. PRAVASTATIN [Concomitant]
     Dates: start: 20090204
  9. ZETIA [Concomitant]
     Dates: start: 20090417
  10. ALOE VERA [Concomitant]
     Dosage: DOSE: 202 QD
     Dates: start: 20090523

REACTIONS (1)
  - ALVEOLITIS [None]
